FAERS Safety Report 5948231-3 (Version None)
Quarter: 2008Q4

REPORT INFORMATION
  Report Type: 
  Country: None (occurrence: None)
  Receive Date: 20081111
  Receipt Date: 20081028
  Transmission Date: 20090506
  Serious: No
  Sender: FDA-Public Use
  Company Number: FR-ELI_LILLY_AND_COMPANY-FR200809003517

PATIENT
  Age: 85 Year
  Sex: Female
  Weight: 75 kg

DRUGS (5)
  1. FORTEO [Suspect]
     Indication: OSTEOPOROSIS
     Dosage: 20 UG, DAILY (1/D)
     Route: 058
     Dates: start: 20080801
  2. LASIX [Concomitant]
     Dosage: UNK, UNKNOWN
     Route: 048
  3. APROVEL [Concomitant]
     Dosage: UNK, UNKNOWN
     Route: 048
  4. AMIODARONE HCL [Concomitant]
     Dosage: UNK, UNKNOWN
     Route: 048
  5. KARDEGIC [Concomitant]
     Dosage: UNK, UNKNOWN
     Route: 048

REACTIONS (2)
  - DYSPNOEA [None]
  - HYPERTENSIVE CRISIS [None]
